FAERS Safety Report 7007394-1 (Version None)
Quarter: 2010Q3

REPORT INFORMATION
  Report Type: 
  Country: None (occurrence: None)
  Receive Date: 20100922
  Receipt Date: 20100907
  Transmission Date: 20110219
  Serious: Yes (Other)
  Sender: FDA-Public Use
  Company Number: FR-PFIZER INC-2010112569

PATIENT
  Age: 54 Year
  Sex: Female

DRUGS (5)
  1. VFEND [Suspect]
     Indication: BRONCHOPULMONARY ASPERGILLOSIS
     Dosage: 250 MG, 2X/DAY
     Route: 042
     Dates: start: 20100208, end: 20100224
  2. BUMEX [Concomitant]
     Dosage: 2 ML PER HOUR
  3. ACTRAPID [Concomitant]
     Dosage: UNK
     Route: 042
  4. FORLAX [Concomitant]
  5. LOXEN [Concomitant]
     Dosage: 10 ML PER HOUR
     Route: 042

REACTIONS (2)
  - CHOLESTASIS [None]
  - HEPATOCELLULAR INJURY [None]
